FAERS Safety Report 17502502 (Version 1)
Quarter: 2020Q1

REPORT INFORMATION
  Report Type: Spontaneous
  Country: AR (occurrence: AR)
  Receive Date: 20200305
  Receipt Date: 20200305
  Transmission Date: 20200409
  Serious: Yes (Hospitalization)
  Sender: FDA-Public Use
  Company Number: AR-MYLANLABS-2020M1023811

PATIENT
  Sex: Male

DRUGS (4)
  1. ZUCLOPENTIXOL [Concomitant]
     Active Substance: ZUCLOPENTHIXOL
     Dosage: UNK
  2. RISPERIDONE. [Concomitant]
     Active Substance: RISPERIDONE
     Dosage: UNK
  3. LAMOTRIGINE. [Concomitant]
     Active Substance: LAMOTRIGINE
     Dosage: UNK
  4. LAPENAX [Suspect]
     Active Substance: CLOZAPINE
     Indication: PRODUCT USED FOR UNKNOWN INDICATION
     Dosage: 300 MILLIGRAM, QD
     Dates: start: 20190909

REACTIONS (1)
  - Psychiatric decompensation [Unknown]
